FAERS Safety Report 4744521-0 (Version None)
Quarter: 2005Q3

REPORT INFORMATION
  Report Type: 
  Country: None (occurrence: None)
  Receive Date: 20050808
  Receipt Date: 20050719
  Transmission Date: 20060218
  Serious: Yes (Other)
  Sender: FDA-Public Use
  Company Number: 2005BH000605

PATIENT
  Age: 29 Year
  Sex: Female

DRUGS (6)
  1. LACTATED RINGER'S [Suspect]
     Dosage: 1000 ML; IV
     Route: 042
     Dates: start: 20050427
  2. TRAMADOL HCL [Concomitant]
  3. RANITIDINE HCL [Concomitant]
  4. LACTATED RINGER'S [Suspect]
  5. LACTATED RINGER'S [Suspect]
  6. LACTATED RINGER'S [Suspect]

REACTIONS (2)
  - INFUSION RELATED REACTION [None]
  - RASH GENERALISED [None]
